FAERS Safety Report 8524608-7 (Version None)
Quarter: 2012Q3

REPORT INFORMATION
  Report Type: 
  Country: None (occurrence: None)
  Receive Date: 20120720
  Receipt Date: 20090826
  Transmission Date: 20120928
  Serious: Yes (Hospitalization)
  Sender: FDA-Public Use
  Company Number: AT-ROCHE-652592

PATIENT
  Age: 74 Year
  Sex: Female
  Weight: 66 kg

DRUGS (1)
  1. XELODA [Suspect]
     Indication: METASTATIC GASTRIC CANCER
     Dosage: DRUG RECEIVED AS 2ND LINE OF CHEMOTHERAPY.
     Route: 048
     Dates: start: 20090620, end: 20090703

REACTIONS (1)
  - AMNESIA [None]
